FAERS Safety Report 4579557-6 (Version None)
Quarter: 2005Q1

REPORT INFORMATION
  Report Type: 
  Country: None (occurrence: None)
  Receive Date: 20050214
  Receipt Date: 20050131
  Transmission Date: 20050727
  Serious: Yes (Other)
  Sender: FDA-Public Use
  Company Number: US-JNJFOC-20050202624

PATIENT
  Sex: Male

DRUGS (3)
  1. INFLIXIMAB [Suspect]
     Indication: WEGENER'S GRANULOMATOSIS
     Route: 042
  2. CYCLOPHOSPHAMIDE [Suspect]
     Indication: WEGENER'S GRANULOMATOSIS
  3. GLUCOCORTICOIDS [Concomitant]
     Indication: WEGENER'S GRANULOMATOSIS

REACTIONS (2)
  - METASTATIC RENAL CELL CARCINOMA [None]
  - WEGENER'S GRANULOMATOSIS [None]
